FAERS Safety Report 4678508-3 (Version None)
Quarter: 2005Q2

REPORT INFORMATION
  Report Type: 
  Country: None (occurrence: None)
  Receive Date: 20050601
  Receipt Date: 20050513
  Transmission Date: 20051028
  Serious: Yes (Other)
  Sender: FDA-Public Use
  Company Number: JP-MERCK-0505USA03379

PATIENT
  Age: 70 Year
  Sex: Male

DRUGS (8)
  1. PEPCID [Suspect]
     Route: 048
     Dates: start: 20050406, end: 20050506
  2. KALIMATE [Concomitant]
     Route: 048
     Dates: start: 20050428
  3. PREDONINE [Concomitant]
     Route: 048
     Dates: start: 20050406
  4. SELBEX [Concomitant]
     Route: 048
     Dates: start: 20050406
  5. ENDOXAN [Concomitant]
     Route: 048
     Dates: start: 20050420, end: 20050506
  6. BAYASPIRIN [Concomitant]
     Route: 048
     Dates: start: 20050415
  7. PERSANTIN [Concomitant]
     Route: 048
     Dates: start: 20050415
  8. BLOPRESS [Concomitant]
     Route: 048
     Dates: start: 20050415, end: 20050426

REACTIONS (2)
  - NEUTROPHIL COUNT DECREASED [None]
  - PNEUMONIA [None]
